FAERS Safety Report 14541173 (Version 1)
Quarter: 2018Q1

REPORT INFORMATION
  Report Type: Spontaneous
  Country: US (occurrence: US)
  Receive Date: 20180216
  Receipt Date: 20180216
  Transmission Date: 20180509
  Serious: Yes (Hospitalization)
  Sender: FDA-Public Use
  Company Number: US-OTSUKA-DJ20107240

PATIENT

DRUGS (1)
  1. ABILIFY [Suspect]
     Active Substance: ARIPIPRAZOLE
     Route: 048

REACTIONS (6)
  - Pyrexia [Unknown]
  - Accidental overdose [Unknown]
  - Somnolence [Not Recovered/Not Resolved]
  - Vomiting [Unknown]
  - Hypotension [Unknown]
  - Bradyphrenia [Not Recovered/Not Resolved]
